FAERS Safety Report 17558637 (Version 2)
Quarter: 2020Q3

REPORT INFORMATION
  Report Type: Report from Study
  Country: CA (occurrence: CA)
  Receive Date: 20200318
  Receipt Date: 20200928
  Transmission Date: 20201102
  Serious: Yes (Hospitalization, Other)
  Sender: FDA-Public Use
  Company Number: PHHY2018CA189141

PATIENT
  Age: 42 Year
  Sex: Male

DRUGS (6)
  1. COSENTYX [Suspect]
     Active Substance: SECUKINUMAB
     Dosage: 150 MG, QW
     Route: 058
     Dates: start: 20181125
  2. COSENTYX [Suspect]
     Active Substance: SECUKINUMAB
     Dosage: 300 MG (150 MG, QMO, 150 MG, 2 WEEKS LATER)
     Route: 058
     Dates: start: 20191203, end: 20191218
  3. COSENTYX [Suspect]
     Active Substance: SECUKINUMAB
     Dosage: 150 MG, QMO (SENSOREADY PEN)
     Route: 058
     Dates: start: 20190218
  4. COSENTYX [Suspect]
     Active Substance: SECUKINUMAB
     Dosage: 150 MG, QMO
     Route: 058
     Dates: start: 20190518
  5. COSENTYX [Suspect]
     Active Substance: SECUKINUMAB
     Indication: ANKYLOSING SPONDYLITIS
     Dosage: 300 MG (150 MG, QMO, 150 MG, 2 WEEKS LATER)
     Route: 058
     Dates: start: 20181118
  6. COSENTYX [Suspect]
     Active Substance: SECUKINUMAB
     Dosage: 300 UNK (150 MG, QMO, 150 MG, 2 WEEKS LATER)
     Route: 058
     Dates: start: 20181118, end: 20191218

REACTIONS (37)
  - Ankylosing spondylitis [Recovering/Resolving]
  - Arthralgia [Recovered/Resolved]
  - Joint dislocation [Unknown]
  - Malaise [Unknown]
  - Asthenia [Recovered/Resolved]
  - Ear discomfort [Recovered/Resolved]
  - Musculoskeletal stiffness [Unknown]
  - Insomnia [Unknown]
  - Fracture [Unknown]
  - Movement disorder [Unknown]
  - Drug ineffective [Unknown]
  - Heliotrope rash [Recovered/Resolved]
  - Headache [Unknown]
  - Arthralgia [Recovering/Resolving]
  - Pain in extremity [Unknown]
  - Pain [Unknown]
  - Muscle fatigue [Unknown]
  - Hypoaesthesia [Not Recovered/Not Resolved]
  - Eyelid rash [Unknown]
  - Arthritis reactive [Unknown]
  - Discomfort [Unknown]
  - Hyperthermia [Recovered/Resolved]
  - Paraesthesia [Recovered/Resolved]
  - Sexually transmitted disease [Recovered/Resolved]
  - Therapeutic response shortened [Unknown]
  - Joint swelling [Unknown]
  - Gait disturbance [Unknown]
  - Muscle spasms [Recovered/Resolved]
  - Migraine [Recovered/Resolved]
  - Myalgia [Recovered/Resolved]
  - Burning sensation [Recovered/Resolved]
  - Back pain [Recovering/Resolving]
  - Urinary tract infection [Recovered/Resolved]
  - Neck pain [Recovering/Resolving]
  - Fatigue [Unknown]
  - Feeling abnormal [Unknown]
  - Inappropriate schedule of product administration [Unknown]

NARRATIVE: CASE EVENT DATE: 20181126
